FAERS Safety Report 19088773 (Version 1)
Quarter: 2021Q2

REPORT INFORMATION
  Report Type: Spontaneous
  Country: US (occurrence: US)
  Receive Date: 20210403
  Receipt Date: 20210403
  Transmission Date: 20210717
  Serious: Yes (Other)
  Sender: FDA-Public Use
  Company Number: US-AUROBINDO-AUR-APL-2019-082871

PATIENT
  Age: 66 Year
  Sex: Female

DRUGS (6)
  1. TRAMADOL TABLET [Interacting]
     Active Substance: TRAMADOL
     Indication: BACK PAIN
     Dosage: 50 MILLIGRAM,TABLET EVERY FOUR TO SIX HOURS AS NEEDED FOR PAIN
     Route: 065
  2. ALCOHOL. [Interacting]
     Active Substance: ALCOHOL
     Indication: PRODUCT USED FOR UNKNOWN INDICATION
     Dosage: UNK
     Route: 065
  3. SPIRONOLACTONE TABLET [Suspect]
     Active Substance: SPIRONOLACTONE
     Indication: ALCOHOLIC LIVER DISEASE
     Dosage: 25 MILLIGRAM
     Route: 065
  4. PROPRANOLOL HCL [Interacting]
     Active Substance: PROPRANOLOL HYDROCHLORIDE
     Indication: PORTAL HYPERTENSION
     Dosage: 1 DOSAGE FORM, DAILY
     Route: 065
  5. VITAMIN C [Interacting]
     Active Substance: ASCORBIC ACID
     Indication: PRODUCT USED FOR UNKNOWN INDICATION
     Dosage: 1 DOSAGE FORM, DAILY
     Route: 065
  6. TIOTROPIUM [Interacting]
     Active Substance: TIOTROPIUM
     Indication: PRODUCT USED FOR UNKNOWN INDICATION
     Dosage: INHALE THE CONTENTS OF ONE CAPSULE DAILY
     Route: 065

REACTIONS (5)
  - Loss of consciousness [Recovering/Resolving]
  - Pollakiuria [Recovering/Resolving]
  - Drug interaction [Recovering/Resolving]
  - Dizziness [Unknown]
  - Treatment noncompliance [Unknown]
